FAERS Safety Report 7538306-X (Version None)
Quarter: 2011Q2

REPORT INFORMATION
  Report Type: 
  Country: None (occurrence: None)
  Receive Date: 20110609
  Receipt Date: 20080619
  Transmission Date: 20111010
  Serious: Yes (Hospitalization)
  Sender: FDA-Public Use
  Company Number: PHHY2008JP11614

PATIENT
  Sex: Female
  Weight: 51 kg

DRUGS (2)
  1. CANDESARTAN CILEXETIL [Concomitant]
     Dosage: UNK
     Route: 048
     Dates: start: 20070227
  2. DIOVAN [Suspect]
     Indication: HYPERTENSION
     Dosage: 40 MG, DAILY
     Route: 048
     Dates: start: 20070122, end: 20070227

REACTIONS (1)
  - FEMUR FRACTURE [None]
